FAERS Safety Report 5725488-5 (Version None)
Quarter: 2008Q2

REPORT INFORMATION
  Report Type: 
  Country: None (occurrence: None)
  Receive Date: 20080501
  Receipt Date: 20080430
  Transmission Date: 20081010
  Serious: Yes (Death, Other)
  Sender: FDA-Public Use
  Company Number: US-ASTRAZENECA-2008UW02091

PATIENT
  Age: 74 Year
  Sex: Male

DRUGS (2)
  1. IRESSA [Suspect]
     Indication: NON-SMALL CELL LUNG CANCER
     Route: 048
     Dates: start: 20020131, end: 20071201
  2. COUMADIN [Concomitant]

REACTIONS (3)
  - DEATH [None]
  - NON-SMALL CELL LUNG CANCER RECURRENT [None]
  - PULMONARY EMBOLISM [None]
